FAERS Safety Report 11910274 (Version 4)
Quarter: 2016Q2

REPORT INFORMATION
  Report Type: Report from Study
  Country: JP (occurrence: JP)
  Receive Date: 20160112
  Receipt Date: 20160401
  Transmission Date: 20160815
  Serious: Yes (Death, Life-Threatening, Disabling, Other)
  Sender: FDA-Public Use
  Company Number: JP-OTSUKA-2015_018181AA

PATIENT
  Age: 51 Year
  Sex: Female
  Weight: 44.7 kg

DRUGS (3)
  1. OCTOTIAMINE [Concomitant]
     Active Substance: OCTOTIAMINE
     Indication: PRODUCT USED FOR UNKNOWN INDICATION
     Dosage: 3 DF, DAILY DOSE
     Route: 048
     Dates: end: 20151222
  2. URSODEOXYCHOLIC ACID [Concomitant]
     Active Substance: URSODIOL
     Indication: PRODUCT USED FOR UNKNOWN INDICATION
     Dosage: 300 MG, DAILY DOSE
     Route: 048
     Dates: end: 20151222
  3. TOLVAPTAN [Suspect]
     Active Substance: TOLVAPTAN
     Indication: CONGENITAL CYSTIC KIDNEY DISEASE
     Dosage: 30 MG, BID
     Route: 048
     Dates: start: 20150722, end: 201512

REACTIONS (12)
  - Disseminated intravascular coagulation [Not Recovered/Not Resolved]
  - Renal impairment [Not Recovered/Not Resolved]
  - Acute respiratory failure [Fatal]
  - Cardiac arrest [Fatal]
  - Coagulopathy [Fatal]
  - Klebsiella bacteraemia [Fatal]
  - Acute kidney injury [Fatal]
  - Dehydration [Unknown]
  - Coma hepatic [Fatal]
  - Acute hepatic failure [Fatal]
  - Hepatic cyst infection [Not Recovered/Not Resolved]
  - Gastroenteritis [Not Recovered/Not Resolved]

NARRATIVE: CASE EVENT DATE: 20151214
